FAERS Safety Report 4433844-0 (Version None)
Quarter: 2004Q3

REPORT INFORMATION
  Report Type: 
  Country: None (occurrence: None)
  Receive Date: 20040825
  Receipt Date: 20040806
  Transmission Date: 20050211
  Serious: Yes (Hospitalization)
  Sender: FDA-Public Use
  Company Number: USA040874849

PATIENT
  Age: 73 Year
  Sex: Female

DRUGS (13)
  1. FORTEO [Suspect]
     Indication: OSTEOPOROSIS
     Dates: start: 20031101, end: 20040501
  2. ACIDOPHILUS [Concomitant]
  3. AVAPRO [Concomitant]
  4. ALLEGRA [Concomitant]
  5. AMBIEN [Concomitant]
  6. AMIODARONE [Concomitant]
  7. CALCIUM CARBONATE [Concomitant]
  8. CARDIZEM [Concomitant]
  9. COMBIVENT [Concomitant]
  10. COUMADIN [Concomitant]
  11. FLOVENT [Concomitant]
  12. LANOXIN [Concomitant]
  13. LASIX [Concomitant]

REACTIONS (6)
  - ANAEMIA [None]
  - NAUSEA [None]
  - OEDEMA PERIPHERAL [None]
  - PHARMACEUTICAL PRODUCT COMPLAINT [None]
  - RESPIRATORY TRACT INFECTION [None]
  - TREATMENT NONCOMPLIANCE [None]
